FAERS Safety Report 4966115-4 (Version None)
Quarter: 2006Q2

REPORT INFORMATION
  Report Type: 
  Country: None (occurrence: None)
  Receive Date: 20060403
  Receipt Date: 20060328
  Transmission Date: 20061013
  Serious: Yes (Hospitalization)
  Sender: FDA-Public Use
  Company Number: S06-USA-01132-01

PATIENT
  Age: 34 Year
  Sex: Female

DRUGS (6)
  1. CITALOPRAM [Suspect]
     Indication: DEPRESSION
     Dosage: 40 MG QD PO
     Route: 048
     Dates: start: 20060228
  2. PHENERGAN [Suspect]
     Indication: PAIN
     Dates: start: 20060313, end: 20060301
  3. VICODIN [Concomitant]
  4. HYDROCODONE [Suspect]
  5. MORPHINE [Concomitant]
  6. IMITREX [Concomitant]

REACTIONS (5)
  - DRUG EFFECT DECREASED [None]
  - DRUG INTERACTION [None]
  - DRUG TOLERANCE [None]
  - PROCEDURAL PAIN [None]
  - THERAPY NON-RESPONDER [None]
